FAERS Safety Report 10758744 (Version 1)
Quarter: 2015Q1

REPORT INFORMATION
  Report Type: Spontaneous
  Country: US (occurrence: None)
  Receive Date: 20150123
  Receipt Date: 20150123
  Transmission Date: 20150721
  Serious: Yes (Hospitalization)
  Sender: FDA-Public Use
  Company Number: TPA2013A01694

PATIENT
  Age: 72 Year
  Sex: Female

DRUGS (13)
  1. CALCIUM [Concomitant]
     Active Substance: CALCIUM
  2. SIMVASTATIN. [Concomitant]
     Active Substance: SIMVASTATIN
  3. PANTOPRAZOLE [Concomitant]
     Active Substance: PANTOPRAZOLE SODIUM
  4. ASPIRIN (ACETYLSALICYLIC ACID) [Concomitant]
     Active Substance: ASPIRIN
  5. HEPARIN [Concomitant]
     Active Substance: HEPARIN SODIUM
  6. CARVEDILOL. [Concomitant]
     Active Substance: CARVEDILOL
  7. VENOFER (SACCHARATED IRON OXIDE) [Concomitant]
  8. OMONTYS [Suspect]
     Active Substance: PEGINESATIDE
     Indication: NEPHROGENIC ANAEMIA
     Route: 042
     Dates: start: 20130212, end: 20130212
  9. FLEXERIL [Concomitant]
     Active Substance: CYCLOBENZAPRINE HYDROCHLORIDE
  10. SERTRALINE [Concomitant]
     Active Substance: SERTRALINE HYDROCHLORIDE
  11. TRAZODONE [Concomitant]
     Active Substance: TRAZODONE HYDROCHLORIDE
  12. EPOGEN [Concomitant]
     Active Substance: ERYTHROPOIETIN
  13. BODY QUEST ICE-CREAM (PROTEIN SUPPLEMENTS) [Concomitant]

REACTIONS (1)
  - Vascular graft thrombosis [None]

NARRATIVE: CASE EVENT DATE: 20130212
